FAERS Safety Report 7206508-8 (Version None)
Quarter: 2011Q1

REPORT INFORMATION
  Report Type: 
  Country: None (occurrence: None)
  Receive Date: 20110103
  Receipt Date: 20101220
  Transmission Date: 20110831
  Serious: Yes (Hospitalization)
  Sender: FDA-Public Use
  Company Number: NL-MEDIMMUNE-MEDI-0012086

PATIENT
  Sex: Female

DRUGS (2)
  1. SYNAGIS [Suspect]
     Route: 030
     Dates: start: 20101122, end: 20101220
  2. SYNAGIS [Suspect]
     Route: 028
     Dates: start: 20100928, end: 20101025

REACTIONS (7)
  - COUGH [None]
  - SENSE OF OPPRESSION [None]
  - RHINOVIRUS INFECTION [None]
  - NASOPHARYNGITIS [None]
  - RESPIRATORY TRACT INFECTION [None]
  - ILL-DEFINED DISORDER [None]
  - DYSPNOEA [None]
